APPROVED DRUG PRODUCT: PSORCON E
Active Ingredient: DIFLORASONE DIACETATE
Strength: 0.05%
Dosage Form/Route: OINTMENT;TOPICAL
Application: N017994 | Product #001
Applicant: PFIZER INC
Approved: Approved Prior to Jan 1, 1982 | RLD: No | RS: No | Type: DISCN